FAERS Safety Report 21878594 (Version 1)
Quarter: 2023Q1

REPORT INFORMATION
  Report Type: Spontaneous
  Country: GB (occurrence: TZ)
  Receive Date: 20230118
  Receipt Date: 20230118
  Transmission Date: 20230417
  Serious: Yes (Hospitalization, Other)
  Sender: FDA-Public Use
  Company Number: GB-MHRA-MED-202301100921538540-KTRSV

PATIENT

DRUGS (2)
  1. ATOVAQUONE [Suspect]
     Active Substance: ATOVAQUONE
     Indication: Malaria prophylaxis
     Dosage: 1 DF, QD,STARTED 1-2 DAYS BEFORE ENTERING ENDEMIC AREA CONTINUED FOR ONE WEEK AFTER
     Route: 065
     Dates: start: 20221223, end: 20230101
  2. PROGUANIL [Suspect]
     Active Substance: PROGUANIL
     Indication: Malaria prophylaxis
     Dosage: 1 DF, QD,STARTED 1-2 DAYS BEFORE ENTERING ENDEMIC AREA CONTINUED FOR ONE WEEK AFTER
     Route: 065
     Dates: start: 20221223, end: 20230101

REACTIONS (4)
  - Hallucination [Unknown]
  - Psychotic disorder [Recovering/Resolving]
  - Vision blurred [Unknown]
  - Hypokinesia [Unknown]

NARRATIVE: CASE EVENT DATE: 20230101
